FAERS Safety Report 8602567-6 (Version None)
Quarter: 2012Q3

REPORT INFORMATION
  Report Type: 
  Country: None (occurrence: None)
  Receive Date: 20120817
  Receipt Date: 20120809
  Transmission Date: 20120928
  Serious: Yes (Hospitalization, Other)
  Sender: FDA-Public Use
  Company Number: PHEH2012US016043

PATIENT
  Sex: Male

DRUGS (6)
  1. KEPPRA [Concomitant]
     Dosage: 750 MG, BID
  2. ZONEGRAN [Concomitant]
     Dosage: 100 MG, QD
  3. SINGULAIR [Concomitant]
     Dosage: 5 MG, QD
  4. CLARITIN [Concomitant]
     Dosage: 10 MG, QD
  5. ZOFRAN [Concomitant]
     Dosage: 4 MG, QD
     Route: 048
  6. TRILEPTAL [Suspect]
     Indication: CONVULSION
     Dosage: 300 MG, BID
     Dates: start: 20080911

REACTIONS (30)
  - EPILEPSY [None]
  - CONTUSION [None]
  - SPEECH DISORDER DEVELOPMENTAL [None]
  - STEVENS-JOHNSON SYNDROME [None]
  - HALLUCINATION, VISUAL [None]
  - FALL [None]
  - DEPRESSION [None]
  - SPEECH DISORDER [None]
  - PYREXIA [None]
  - TINNITUS [None]
  - ADENOIDAL HYPERTROPHY [None]
  - ENTERITIS [None]
  - TONSILLAR HYPERTROPHY [None]
  - EPISTAXIS [None]
  - URINARY INCONTINENCE [None]
  - EXCORIATION [None]
  - HYPOAESTHESIA [None]
  - SHIGELLA INFECTION [None]
  - ANXIETY [None]
  - INFLUENZA [None]
  - AUTISM [None]
  - LEARNING DISORDER [None]
  - ENURESIS [None]
  - RASH MACULO-PAPULAR [None]
  - ASTHMA [None]
  - PHOTOPHOBIA [None]
  - HAEMOPTYSIS [None]
  - JOINT INJURY [None]
  - DEVELOPMENTAL COORDINATION DISORDER [None]
  - MIGRAINE [None]
